FAERS Safety Report 4435041-1 (Version None)
Quarter: 2004Q3

REPORT INFORMATION
  Report Type: 
  Country: None (occurrence: None)
  Receive Date: 20040826
  Receipt Date: 20040826
  Transmission Date: 20050211
  Serious: No
  Sender: FDA-Public Use
  Company Number: None

PATIENT
  Age: 94 Year
  Sex: Female
  Weight: 45.8133 kg

DRUGS (3)
  1. DIGOXIN [Suspect]
     Indication: ATRIAL FIBRILLATION
     Dosage: SEE IMAGE
     Dates: start: 20040402
  2. DIGOXIN [Suspect]
     Indication: ATRIAL FIBRILLATION
     Dosage: SEE IMAGE
     Dates: start: 20040405
  3. AMIODARONE [Concomitant]

REACTIONS (5)
  - DRUG INTERACTION [None]
  - GALLOP RHYTHM PRESENT [None]
  - HALLUCINATION [None]
  - NAUSEA [None]
  - TACHYCARDIA [None]
